FAERS Safety Report 25951215 (Version 1)
Quarter: 2025Q4

REPORT INFORMATION
  Report Type: Spontaneous
  Country: US (occurrence: US)
  Receive Date: 20251023
  Receipt Date: 20251023
  Transmission Date: 20260117
  Serious: Yes (Other)
  Sender: MELINTA THERAPEUTICS
  Company Number: US-MELINTA THERAPEUTICS, LLC-US-MLNT-25-00259

PATIENT

DRUGS (5)
  1. METOPROLOL SUCCINATE [Suspect]
     Active Substance: METOPROLOL SUCCINATE
     Indication: Product used for unknown indication
     Dosage: 50 MILLIGRAM, UNK
     Route: 048
     Dates: end: 2025
  2. METOPROLOL SUCCINATE [Suspect]
     Active Substance: METOPROLOL SUCCINATE
     Dosage: 100 MILLIGRAM, UNK
     Route: 048
  3. BRILINTA [Suspect]
     Active Substance: TICAGRELOR
     Indication: Myocardial infarction
     Dosage: 90 MILLIGRAM, BID
     Dates: start: 202408
  4. BRILINTA [Suspect]
     Active Substance: TICAGRELOR
     Indication: Stent placement
  5. ASPIRIN [Concomitant]
     Active Substance: ASPIRIN
     Indication: Product used for unknown indication

REACTIONS (12)
  - Circulatory collapse [Unknown]
  - Altered state of consciousness [Unknown]
  - Altered state of consciousness [Unknown]
  - Fall [Unknown]
  - Limb injury [Unknown]
  - Lip injury [Unknown]
  - Fall [Unknown]
  - Limb injury [Unknown]
  - Supraventricular tachycardia [Unknown]
  - Eyeglasses therapy [Unknown]
  - Stress [Unknown]
  - Palpitations [Unknown]

NARRATIVE: CASE EVENT DATE: 20250501
